FAERS Safety Report 7773311-X (Version None)
Quarter: 2011Q3

REPORT INFORMATION
  Report Type: 
  Country: None (occurrence: None)
  Receive Date: 20110922
  Receipt Date: 20110909
  Transmission Date: 20111222
  Serious: Yes (Hospitalization)
  Sender: FDA-Public Use
  Company Number: US-MYLANLABS-2011S1019123

PATIENT
  Age: 66 Year
  Sex: Male

DRUGS (7)
  1. GLYBURIDE [Concomitant]
     Dosage: SAME DOSAGE FOR A NUMBER OF MONTHS
     Route: 065
  2. SIMVASTATIN [Concomitant]
     Dosage: SAME DOSAGE FOR A NUMBER OF MONTHS
     Route: 065
  3. NAPROXEN [Suspect]
     Indication: ARTHRALGIA
     Route: 065
  4. COTRIM [Suspect]
     Indication: URINARY TRACT INFECTION
     Route: 065
  5. LISINOPRIL [Suspect]
     Dosage: SAME DOSAGE FOR A NUMBER OF MONTHS
     Route: 065
  6. SITAGLIPTIN [Concomitant]
     Dosage: SAME DOSAGE FOR A NUMBER OF MONTHS
     Route: 065
  7. ROSIGLITAZONE [Concomitant]
     Dosage: SAME DOSAGE FOR A NUMBER OF MONTHS
     Route: 065

REACTIONS (2)
  - HYPERKALAEMIA [None]
  - ELECTROCARDIOGRAM ABNORMAL [None]
